FAERS Safety Report 20813683 (Version 1)
Quarter: 2022Q2

REPORT INFORMATION
  Report Type: Spontaneous
  Country: US (occurrence: None)
  Receive Date: 20220510
  Receipt Date: 20220510
  Transmission Date: 20220721
  Serious: Yes (Other)
  Sender: FDA-Public Use
  Company Number: None

PATIENT
  Age: 65 Year
  Sex: Female
  Weight: 54 kg

DRUGS (1)
  1. ZOLEDRONIC ACID [Suspect]
     Active Substance: ZOLEDRONIC ACID
     Indication: Osteoporosis
     Route: 042
     Dates: start: 20220301, end: 20220301

REACTIONS (5)
  - Headache [None]
  - Feeling abnormal [None]
  - Tendon disorder [None]
  - Neck pain [None]
  - Back pain [None]

NARRATIVE: CASE EVENT DATE: 20220301
